FAERS Safety Report 22055129 (Version 1)
Quarter: 2023Q1

REPORT INFORMATION
  Report Type: Spontaneous
  Country: US (occurrence: US)
  Receive Date: 20230302
  Receipt Date: 20230302
  Transmission Date: 20230418
  Serious: Yes (Other)
  Sender: FDA-Public Use
  Company Number: US-Nobelpharma America, LLC-NPA-2023-00341

PATIENT
  Age: 4 Decade
  Sex: Female

DRUGS (1)
  1. HYFTOR [Suspect]
     Active Substance: SIROLIMUS
     Indication: Tuberous sclerosis complex
     Dosage: APPLY 2.5CM TOPICAL GEL TO AFFECTED AREA OF FACE
     Route: 061

REACTIONS (3)
  - Lung neoplasm [Unknown]
  - Renal neoplasm [Unknown]
  - Dry skin [Unknown]
